FAERS Safety Report 10456625 (Version 8)
Quarter: 2015Q2

REPORT INFORMATION
  Report Type: Spontaneous
  Country: US (occurrence: US)
  Receive Date: 20140916
  Receipt Date: 20150630
  Transmission Date: 20150821
  Serious: Yes (Hospitalization, Other)
  Sender: FDA-Public Use
  Company Number: US-PFIZER INC-2014251984

PATIENT
  Age: 79 Year
  Sex: Male
  Weight: 75 kg

DRUGS (10)
  1. ASPIRIN /00002701/ [Concomitant]
     Active Substance: ASPIRIN
  2. SUTENT [Suspect]
     Active Substance: SUNITINIB MALATE
     Indication: RENAL CANCER
     Dosage: 50 MG DAILY (4WEEKS ON 2 WEEKS OFF)
     Route: 048
     Dates: start: 20140813
  3. NEPHRO-VITE [Concomitant]
     Dosage: UNK
     Dates: start: 2013
  4. RENVELA [Concomitant]
     Active Substance: SEVELAMER CARBONATE
     Indication: RENAL DISORDER
     Dosage: 1600 MG, 3X/DAY (TAKE 2 A MEALS 3 TIMES A DAY)
     Dates: start: 2013
  5. AMLODIPINE [Concomitant]
     Active Substance: AMLODIPINE BESYLATE
  6. SERTRALINE HCL [Concomitant]
     Active Substance: SERTRALINE HYDROCHLORIDE
     Indication: DEPRESSION
     Dosage: 25 MG, 1X/DAY
  7. SENSIPAR [Concomitant]
     Active Substance: CINACALCET HYDROCHLORIDE
     Dosage: UNK
     Dates: start: 2013
  8. PRAVASTATIN [Concomitant]
     Active Substance: PRAVASTATIN\PRAVASTATIN SODIUM
     Dosage: UNK
     Dates: start: 2013
  9. NIFEDIPINE. [Concomitant]
     Active Substance: NIFEDIPINE
     Dosage: 90 MG, 1X/DAY
  10. SUTENT [Suspect]
     Active Substance: SUNITINIB MALATE
     Dosage: 37.5 MG, 1X/DAY (37.5MG CAP 1 A DAY (28 DAYS ON/14 DAYS OFF))
     Route: 048
     Dates: start: 2014

REACTIONS (18)
  - Thrombocytopenia [Unknown]
  - Lymphadenopathy [Unknown]
  - Dry skin [Unknown]
  - Diarrhoea [Recovered/Resolved]
  - Ageusia [Not Recovered/Not Resolved]
  - Osteoarthritis [Unknown]
  - Constipation [Unknown]
  - Weight decreased [Not Recovered/Not Resolved]
  - Hyperadrenalism [Unknown]
  - Nausea [Not Recovered/Not Resolved]
  - Decreased appetite [Not Recovered/Not Resolved]
  - Haematochezia [Unknown]
  - Diarrhoea haemorrhagic [Recovered/Resolved]
  - Leukopenia [Unknown]
  - Fatigue [Unknown]
  - Skin discolouration [Not Recovered/Not Resolved]
  - Bursitis [Unknown]
  - Back pain [Unknown]

NARRATIVE: CASE EVENT DATE: 201408
